FAERS Safety Report 15300363 (Version 1)
Quarter: 2018Q3

REPORT INFORMATION
  Report Type: Spontaneous
  Country: US (occurrence: US)
  Receive Date: 20180808
  Receipt Date: 20180808
  Transmission Date: 20181010
  Serious: No
  Sender: FDA-Public Use
  Company Number: None

PATIENT
  Age: 35 Year
  Sex: Female

DRUGS (5)
  1. VIVELLE?DOT [Concomitant]
     Active Substance: ESTRADIOL
  2. LORAZEPAM. [Concomitant]
     Active Substance: LORAZEPAM
  3. ESTRADIOL. [Concomitant]
     Active Substance: ESTRADIOL
  4. GLEOSTINE [Suspect]
     Active Substance: LOMUSTINE
     Indication: BRAIN NEOPLASM MALIGNANT
     Route: 048
     Dates: start: 20010419
  5. LEVETIRACETA [Concomitant]

REACTIONS (2)
  - Vomiting [None]
  - Nausea [None]

NARRATIVE: CASE EVENT DATE: 20170417
